FAERS Safety Report 11867140 (Version 2)
Quarter: 2016Q1

REPORT INFORMATION
  Report Type: Report from Study
  Country: JP (occurrence: JP)
  Receive Date: 20151224
  Receipt Date: 20160125
  Transmission Date: 20160526
  Serious: No
  Sender: FDA-Public Use
  Company Number: JP-JNJFOC-20151214206

PATIENT
  Age: 48 Year
  Sex: Male
  Weight: 64 kg

DRUGS (14)
  1. XEPLION [Suspect]
     Active Substance: PALIPERIDONE PALMITATE
     Indication: SCHIZOPHRENIA
     Dosage: LEFT DELTOID MUSCLE
     Route: 030
     Dates: start: 20150729, end: 20150729
  2. LULLAN [Concomitant]
     Active Substance: PEROSPIRONE HYDROCHLORIDE
     Indication: SCHIZOPHRENIA
     Route: 048
     Dates: start: 20090410, end: 20150623
  3. QUETIAPINE [Concomitant]
     Active Substance: QUETIAPINE
     Indication: SCHIZOPHRENIA
     Route: 048
  4. RIVOTRIL [Concomitant]
     Active Substance: CLONAZEPAM
     Indication: PROPHYLAXIS
     Route: 048
     Dates: end: 20150811
  5. XEPLION [Suspect]
     Active Substance: PALIPERIDONE PALMITATE
     Indication: SCHIZOPHRENIA
     Dosage: RIGHT GLUTEAL MUSCLE
     Route: 030
     Dates: start: 20150826, end: 20150826
  6. HALCION [Concomitant]
     Active Substance: TRIAZOLAM
     Indication: SCHIZOPHRENIA
     Route: 048
  7. BIPERIDEN [Concomitant]
     Active Substance: BIPERIDEN
     Indication: PROPHYLAXIS
     Route: 048
  8. GOODMIN [Concomitant]
     Active Substance: BROTIZOLAM
     Indication: PRODUCT USED FOR UNKNOWN INDICATION
     Route: 048
  9. RIVOTRIL [Concomitant]
     Active Substance: CLONAZEPAM
     Indication: PROPHYLAXIS
     Route: 048
     Dates: start: 20150812
  10. SEROQUEL [Concomitant]
     Active Substance: QUETIAPINE FUMARATE
     Indication: SCHIZOPHRENIA
     Route: 048
     Dates: start: 20150624
  11. ROHYPNOL [Concomitant]
     Active Substance: FLUNITRAZEPAM
     Indication: PRODUCT USED FOR UNKNOWN INDICATION
     Route: 048
  12. XEPLION [Suspect]
     Active Substance: PALIPERIDONE PALMITATE
     Indication: SCHIZOPHRENIA
     Dosage: RIGHT DELTOID MUSCLE
     Route: 030
     Dates: start: 20150701, end: 20150701
  13. XEPLION [Suspect]
     Active Substance: PALIPERIDONE PALMITATE
     Indication: SCHIZOPHRENIA
     Route: 030
     Dates: start: 20150923
  14. FLUNITRAZEPAM [Concomitant]
     Active Substance: FLUNITRAZEPAM
     Indication: SCHIZOPHRENIA
     Route: 048

REACTIONS (1)
  - Constipation [Recovering/Resolving]

NARRATIVE: CASE EVENT DATE: 201509
